FAERS Safety Report 13102179 (Version 1)
Quarter: 2017Q1

REPORT INFORMATION
  Report Type: Spontaneous
  Country: US (occurrence: US)
  Receive Date: 20170110
  Receipt Date: 20170110
  Transmission Date: 20170428
  Serious: Yes (Other)
  Sender: FDA-Public Use
  Company Number: US-ELI_LILLY_AND_COMPANY-US201607012612

PATIENT
  Sex: Female
  Weight: 54 kg

DRUGS (16)
  1. CYMBALTA [Suspect]
     Active Substance: DULOXETINE HYDROCHLORIDE
     Indication: ANXIETY
     Dosage: 60 MG, QD
     Route: 048
     Dates: start: 201208
  2. CYMBALTA [Suspect]
     Active Substance: DULOXETINE HYDROCHLORIDE
     Dosage: 80 MG, QD
     Route: 048
     Dates: start: 2015
  3. CYMBALTA [Suspect]
     Active Substance: DULOXETINE HYDROCHLORIDE
     Dosage: 90 MG,FOR TWO WEEKS
     Route: 048
     Dates: start: 201501
  4. SERTRALINE [Concomitant]
     Active Substance: SERTRALINE HYDROCHLORIDE
     Indication: DEPRESSION
     Dosage: 25 MG, UNKNOWN
     Route: 065
     Dates: start: 20150428
  5. SERTRALINE [Concomitant]
     Active Substance: SERTRALINE HYDROCHLORIDE
     Dosage: 50 MG, UNKNOWN
     Route: 065
     Dates: start: 20150526
  6. CYMBALTA [Suspect]
     Active Substance: DULOXETINE HYDROCHLORIDE
     Dosage: 60 MG, QD
     Route: 048
     Dates: start: 201502
  7. CYMBALTA [Suspect]
     Active Substance: DULOXETINE HYDROCHLORIDE
     Dosage: 40 MG, QD
     Route: 048
     Dates: start: 2015
  8. CYMBALTA [Suspect]
     Active Substance: DULOXETINE HYDROCHLORIDE
     Indication: DEPRESSION
     Dosage: 30 MG,DAILY FOR ONE WEEK
     Route: 048
     Dates: start: 20120806
  9. CYMBALTA [Suspect]
     Active Substance: DULOXETINE HYDROCHLORIDE
     Dosage: 120 MG, QD
     Route: 048
     Dates: start: 20140827, end: 20141209
  10. CYMBALTA [Suspect]
     Active Substance: DULOXETINE HYDROCHLORIDE
     Dosage: 100 MG, DAILY FOR ONE WEEK
     Route: 048
     Dates: start: 20150113
  11. CYMBALTA [Suspect]
     Active Substance: DULOXETINE HYDROCHLORIDE
     Dosage: 30 MG, QD
     Route: 048
     Dates: start: 20150519
  12. CYMBALTA [Suspect]
     Active Substance: DULOXETINE HYDROCHLORIDE
     Dosage: 90 MG, QD
     Route: 048
     Dates: start: 20140731
  13. CYMBALTA [Suspect]
     Active Substance: DULOXETINE HYDROCHLORIDE
     Dosage: 110 MG, QD
     Route: 048
     Dates: start: 20141210
  14. CYMBALTA [Suspect]
     Active Substance: DULOXETINE HYDROCHLORIDE
     Dosage: 20 MG, QD
     Route: 048
     Dates: start: 20150526
  15. CYMBALTA [Suspect]
     Active Substance: DULOXETINE HYDROCHLORIDE
     Dosage: 70 MG, FOR TWO WEEKS
     Route: 048
     Dates: start: 20150215
  16. CYMBALTA [Suspect]
     Active Substance: DULOXETINE HYDROCHLORIDE
     Dosage: 30 MG, QD
     Route: 048
     Dates: start: 20150324

REACTIONS (24)
  - Hypomania [Unknown]
  - Asthenia [Unknown]
  - Insomnia [Unknown]
  - Irritability [Unknown]
  - Dysphoria [Unknown]
  - Confusional state [Unknown]
  - Tearfulness [Unknown]
  - Self-injurious ideation [Unknown]
  - Lethargy [Unknown]
  - Anxiety [Unknown]
  - Suicidal ideation [Unknown]
  - Tremor [Unknown]
  - Agitation [Unknown]
  - Drug withdrawal syndrome [Unknown]
  - Diarrhoea [Unknown]
  - Hyperhidrosis [Recovered/Resolved]
  - Affect lability [Unknown]
  - Apathy [Unknown]
  - Vomiting [Unknown]
  - Dizziness [Unknown]
  - Suicide attempt [Unknown]
  - Paraesthesia [Unknown]
  - Fatigue [Unknown]
  - Tinnitus [Unknown]
